FAERS Safety Report 6190372-2 (Version None)
Quarter: 2009Q2

REPORT INFORMATION
  Report Type: 
  Country: None (occurrence: None)
  Receive Date: 20090514
  Receipt Date: 20090506
  Transmission Date: 20091009
  Serious: Yes (Other)
  Sender: FDA-Public Use
  Company Number: A0784194A

PATIENT
  Sex: Male

DRUGS (3)
  1. SERETIDE [Suspect]
     Indication: CHRONIC OBSTRUCTIVE PULMONARY DISEASE
     Route: 055
     Dates: start: 20090401
  2. FLIXONASE [Concomitant]
     Dosage: 1PUFF TWICE PER DAY
  3. ALLEGRA [Concomitant]
     Dosage: 1TAB PER DAY
     Route: 048

REACTIONS (3)
  - ILL-DEFINED DISORDER [None]
  - PNEUMONIA [None]
  - RESPIRATORY DISORDER [None]
